FAERS Safety Report 22287497 (Version 1)
Quarter: 2023Q2

REPORT INFORMATION
  Report Type: Spontaneous
  Country: CN (occurrence: CN)
  Receive Date: 20230505
  Receipt Date: 20230505
  Transmission Date: 20230722
  Serious: Yes (Other)
  Sender: FDA-Public Use
  Company Number: CN-MACLEODS PHARMACEUTICALS US LTD-MAC2023041079

PATIENT

DRUGS (1)
  1. TRIAMCINOLONE [Suspect]
     Active Substance: TRIAMCINOLONE
     Indication: Rosacea
     Dosage: UNK UNK, QD
     Route: 061

REACTIONS (2)
  - Rosacea [Recovered/Resolved]
  - Topical steroid withdrawal reaction [Recovered/Resolved]
